FAERS Safety Report 12664926 (Version 2)
Quarter: 2016Q3

REPORT INFORMATION
  Report Type: Report from Study
  Country: US (occurrence: US)
  Receive Date: 20160818
  Receipt Date: 20160901
  Transmission Date: 20161109
  Serious: Yes (Hospitalization)
  Sender: FDA-Public Use
  Company Number: US-EISAI MEDICAL RESEARCH-EC-2016-019455

PATIENT
  Age: 35 Year
  Sex: Female
  Weight: 76.2 kg

DRUGS (18)
  1. LIORESAL [Concomitant]
     Active Substance: BACLOFEN
  2. FLONASE [Concomitant]
     Active Substance: FLUTICASONE PROPIONATE
  3. BACTROBAN [Concomitant]
     Active Substance: MUPIROCIN\MUPIROCIN CALCIUM
  4. MULTIVITAMINS MINERALS [Concomitant]
  5. MAGIC MOUTHWASH [Concomitant]
     Active Substance: DIPHENHYDRAMINE HYDROCHLORIDE\LIDOCAINE HYDROCHLORIDE\NYSTATIN
  6. IBUPROFEN. [Concomitant]
     Active Substance: IBUPROFEN
  7. ZOLADEX SC [Concomitant]
  8. ULTRAM [Concomitant]
     Active Substance: TRAMADOL HYDROCHLORIDE
  9. COMPAZINE [Concomitant]
     Active Substance: PROCHLORPERAZINE MALEATE
  10. K-DUR [Concomitant]
     Active Substance: POTASSIUM CHLORIDE
  11. CALCIUM MAGNESIUM CARBONATES [Concomitant]
  12. ROXICODONE [Concomitant]
     Active Substance: OXYCODONE HYDROCHLORIDE
  13. CARAFATE [Concomitant]
     Active Substance: SUCRALFATE
  14. ZYRTEC [Concomitant]
     Active Substance: CETIRIZINE HYDROCHLORIDE
  15. ERIBULIN [Suspect]
     Active Substance: ERIBULIN
     Indication: BREAST CANCER STAGE IV
     Route: 041
     Dates: start: 20160617, end: 20160809
  16. LENVATINIB [Suspect]
     Active Substance: LENVATINIB
     Indication: BREAST CANCER STAGE IV
     Route: 048
     Dates: start: 20160617, end: 20160809
  17. SYNTHROID [Concomitant]
     Active Substance: LEVOTHYROXINE SODIUM
  18. XGEVA [Concomitant]
     Active Substance: DENOSUMAB

REACTIONS (2)
  - Epistaxis [Recovered/Resolved]
  - Febrile neutropenia [Recovered/Resolved]

NARRATIVE: CASE EVENT DATE: 20160808
